FAERS Safety Report 6308442-4 (Version None)
Quarter: 2009Q3

REPORT INFORMATION
  Report Type: 
  Country: None (occurrence: None)
  Receive Date: 20090813
  Receipt Date: 20090805
  Transmission Date: 20100115
  Serious: Yes (Hospitalization, Other)
  Sender: FDA-Public Use
  Company Number: PHEH2009US07986

PATIENT
  Sex: Female

DRUGS (1)
  1. GLEEVEC [Suspect]
     Dosage: 400 MG DAILY
     Route: 048
     Dates: start: 20090202

REACTIONS (3)
  - MALIGNANT TUMOUR EXCISION [None]
  - POST PROCEDURAL COMPLICATION [None]
  - SMALL INTESTINAL OBSTRUCTION [None]
